FAERS Safety Report 8771027 (Version 2)
Quarter: 2012Q4

REPORT INFORMATION
  Report Type: 
  Country: US (occurrence: US)
  Receive Date: 20120906
  Receipt Date: 20120926
  Transmission Date: 20130627
  Serious: No
  Sender: FDA-Public Use
  Company Number: US-PFIZER INC-2012215412

PATIENT
  Age: 49 Year
  Sex: Female
  Weight: 64.1 kg

DRUGS (8)
  1. IBUPROFEN [Suspect]
     Dosage: UNK
  2. OXYCODONE HYDROCHLORIDE [Suspect]
     Dosage: UNK
  3. METHOCARBAMOL [Suspect]
     Dosage: UNK
  4. AMITRIPTYLINE [Suspect]
     Dosage: UNK
  5. VICODIN [Suspect]
     Dosage: UNK
  6. TYLENOL [Suspect]
     Dosage: UNK
  7. ALEVE [Suspect]
     Dosage: UNK
  8. OXYCONTIN [Suspect]
     Dosage: UNK

REACTIONS (4)
  - Drug hypersensitivity [Unknown]
  - Drug hypersensitivity [Unknown]
  - Food allergy [Unknown]
  - Hypersensitivity [Unknown]
